FAERS Safety Report 21912942 (Version 2)
Quarter: 2023Q2

REPORT INFORMATION
  Report Type: Spontaneous
  Country: US (occurrence: US)
  Receive Date: 20230125
  Receipt Date: 20230601
  Transmission Date: 20230722
  Serious: No
  Sender: FDA-Public Use
  Company Number: US-ALLERGAN-2233669US

PATIENT
  Sex: Male
  Weight: 105.23 kg

DRUGS (11)
  1. BOTOX [Suspect]
     Active Substance: ONABOTULINUMTOXINA
     Indication: Migraine
     Dosage: 155 UNITS, SINGLE
     Dates: start: 20221007, end: 20221007
  2. BOTOX [Suspect]
     Active Substance: ONABOTULINUMTOXINA
     Dosage: 155 UNITS, SINGLE
     Dates: start: 20220107, end: 20220107
  3. AMOXICILLIN\CLAVULANATE POTASSIUM [Concomitant]
     Active Substance: AMOXICILLIN\CLAVULANATE POTASSIUM
     Dosage: Q12H, 1 TABLET
     Route: 048
     Dates: start: 20220929
  4. CLARITIN [Concomitant]
     Active Substance: LORATADINE
     Dosage: QD, 1 TABLET
     Route: 048
     Dates: start: 20201124
  5. EXCEDRIN EXTRA STRENGTH [Concomitant]
     Active Substance: ACETAMINOPHEN\ASPIRIN\CAFFEINE
     Dosage: QD, 1 TABLET, AS NEEDED
     Route: 048
     Dates: start: 20200924
  6. MAGNESIUM [Concomitant]
     Active Substance: MAGNESIUM
     Dosage: QD, 1 TABLET
     Route: 048
     Dates: start: 20201124
  7. METHYLPREDNISOLONE [Concomitant]
     Active Substance: METHYLPREDNISOLONE
     Dosage: TAKE AS DIRECTED
     Dates: start: 20220929
  8. VITAMINS NOS [Concomitant]
     Active Substance: VITAMINS
     Dosage: UNK
     Dates: start: 20201027
  9. NEXIUM [Concomitant]
     Active Substance: ESOMEPRAZOLE MAGNESIUM
     Dosage: QD, 1 CAPSULE
     Route: 048
     Dates: start: 20201124
  10. SUMATRIPTAN [Concomitant]
     Active Substance: SUMATRIPTAN
     Dosage: 1 TABLET AT MIGRAINE ONSET, MAY REPEAT IN 2 HRS IF FOR HEADACHE RETURNS, MAX 2 DAILY
     Route: 048
     Dates: start: 20221007
  11. VITAMIN C [Concomitant]
     Active Substance: ASCORBIC ACID
     Dosage: QD, 1 TABLET
     Route: 048
     Dates: start: 20201124

REACTIONS (2)
  - Sinusitis [Unknown]
  - Therapeutic product effect decreased [Unknown]
